FAERS Safety Report 10044552 (Version 2)
Quarter: 2014Q2

REPORT INFORMATION
  Report Type: Spontaneous
  Country: KR (occurrence: KR)
  Receive Date: 20140328
  Receipt Date: 20140520
  Transmission Date: 20141212
  Serious: Yes (Hospitalization, Other)
  Sender: FDA-Public Use
  Company Number: KR-PFIZER INC-2014086305

PATIENT
  Age: 63 Year
  Sex: Male

DRUGS (15)
  1. OMEGA 3 [Concomitant]
     Indication: DYSLIPIDAEMIA
     Dosage: UNK
  2. ASPIRIN [Concomitant]
     Dosage: UNK
     Dates: start: 20140107
  3. WARFARIN [Concomitant]
     Dosage: UNK
     Dates: start: 20140117, end: 20140216
  4. ULTRACET ER [Concomitant]
  5. GASTER [Concomitant]
  6. SMOF LIPID [Concomitant]
  7. CORDARONE [Suspect]
     Indication: ARRHYTHMIA
     Dosage: UNK
     Route: 065
     Dates: start: 20140207
  8. VEMURAFENIB [Suspect]
     Indication: NEOPLASM MALIGNANT
     Dosage: UNK
     Route: 065
     Dates: start: 20131105
  9. VEMURAFENIB [Suspect]
     Dosage: UNK, TWICE IN A DAY
     Route: 048
     Dates: start: 20131213
  10. VEMURAFENIB [Suspect]
     Dosage: 960 MG, UNK
     Dates: start: 20140206
  11. JANUMET [Concomitant]
     Indication: DIABETES MELLITUS
     Dosage: UNK
     Dates: start: 20101117, end: 20140210
  12. NEURONTIN [Concomitant]
     Indication: PAIN
     Dosage: UNK
     Dates: start: 20100925
  13. CRESTOR [Concomitant]
     Indication: DYSLIPIDAEMIA
     Dosage: UNK
  14. COZARTAN [Concomitant]
     Indication: HYPERTENSION
     Dosage: UNK
     Dates: start: 20111222, end: 20140210
  15. CALVAN [Concomitant]
     Indication: HYPERTENSION
     Dosage: UNK
     Dates: start: 20110929

REACTIONS (7)
  - Diarrhoea [Recovered/Resolved]
  - Electrocardiogram QT prolonged [Not Recovered/Not Resolved]
  - Renal tubular acidosis [Unknown]
  - Urine output decreased [Unknown]
  - White blood cell count increased [Recovered/Resolved]
  - Blood urea increased [Recovering/Resolving]
  - Blood creatinine increased [Recovered/Resolved]
